FAERS Safety Report 4312459-9 (Version None)
Quarter: 2004Q1

REPORT INFORMATION
  Report Type: 
  Country: None (occurrence: None)
  Receive Date: 20040305
  Receipt Date: 20040228
  Transmission Date: 20041129
  Serious: Yes (Hospitalization)
  Sender: FDA-Public Use
  Company Number: US-ROCHE-360217

PATIENT
  Age: 34 Year
  Sex: Male

DRUGS (8)
  1. CAPECITABINE [Suspect]
     Indication: COLON CANCER
     Dosage: ACTUAL DOSE RECEIVED WAS 2000 MG BID. ADMINISTERED FROM MONDAY TO FRIDAY EVERY WEEK.
     Route: 048
     Dates: start: 20031103, end: 20031226
  2. BEVACIZUMAB [Suspect]
     Indication: COLON CANCER
     Dosage: ACTUAL DOSE RECEIVED WAS 831 MG.
     Route: 065
     Dates: start: 20031103, end: 20031215
  3. OXALIPLATIN [Suspect]
     Indication: COLON CANCER
     Dosage: ACTUAL DOSE RECEIVED WAS 170 MG.
     Route: 065
     Dates: start: 20031103, end: 20031215
  4. PAXIL [Concomitant]
  5. PROTONIX [Concomitant]
  6. OXYCONTIN [Concomitant]
  7. DICYCLOMINE [Concomitant]
  8. ZOFRAN [Concomitant]

REACTIONS (1)
  - WOUND DEHISCENCE [None]
